FAERS Safety Report 10844905 (Version 1)
Quarter: 2015Q1

REPORT INFORMATION
  Report Type: Spontaneous
  Country: JP (occurrence: JP)
  Receive Date: 20150220
  Receipt Date: 20150220
  Transmission Date: 20150721
  Serious: Yes (Other)
  Sender: FDA-Public Use
  Company Number: PHHY2015JP020053

PATIENT
  Age: 67 Year
  Sex: Female

DRUGS (1)
  1. METHOTREXATE [Suspect]
     Active Substance: METHOTREXATE
     Indication: RHEUMATOID ARTHRITIS
     Dosage: 8 MG, QW
     Route: 065

REACTIONS (5)
  - Hepatic enzyme increased [Unknown]
  - Drug-induced liver injury [Unknown]
  - Hepatic steatosis [Unknown]
  - Hepatic fibrosis [Unknown]
  - Non-alcoholic steatohepatitis [Unknown]
